FAERS Safety Report 20441850 (Version 2)
Quarter: 2022Q1

REPORT INFORMATION
  Report Type: Spontaneous
  Country: US (occurrence: US)
  Receive Date: 20220208
  Receipt Date: 20220322
  Transmission Date: 20220423
  Serious: No
  Sender: FDA-Public Use
  Company Number: US-GILEAD-2022-0568459

PATIENT
  Age: 50 Year
  Sex: Male
  Weight: 86.168 kg

DRUGS (10)
  1. DESCOVY [Suspect]
     Active Substance: EMTRICITABINE\TENOFOVIR ALAFENAMIDE FUMARATE
     Indication: Product used for unknown indication
     Dosage: UNK UNK, QD
     Route: 048
  2. ALBUTEROL [Concomitant]
     Active Substance: ALBUTEROL
  3. ASPIRIN [Concomitant]
     Active Substance: ASPIRIN
     Route: 048
  4. CLONAZEPAM [Concomitant]
     Active Substance: CLONAZEPAM
     Dosage: UNK MG
     Route: 048
  5. MELATONIN [Concomitant]
     Active Substance: MELATONIN
     Dosage: 3 UNK
     Route: 048
  6. METFORMIN [Concomitant]
     Active Substance: METFORMIN HYDROCHLORIDE
     Dosage: UNK
     Route: 048
  7. OLMESARTAN [Concomitant]
     Active Substance: OLMESARTAN
     Route: 048
  8. PRILOSEC [Concomitant]
     Active Substance: OMEPRAZOLE MAGNESIUM
     Route: 048
  9. TRAZODONE [Concomitant]
     Active Substance: TRAZODONE HYDROCHLORIDE
     Route: 048
  10. TESTOSTERONE [Concomitant]
     Active Substance: TESTOSTERONE
     Route: 058

REACTIONS (1)
  - Dermatitis allergic [Recovered/Resolved]

NARRATIVE: CASE EVENT DATE: 20211001
